FAERS Safety Report 7113003-3 (Version None)
Quarter: 2010Q4

REPORT INFORMATION
  Report Type: 
  Country: None (occurrence: None)
  Receive Date: 20101119
  Receipt Date: 20101013
  Transmission Date: 20110411
  Serious: No
  Sender: FDA-Public Use
  Company Number: US-ASTRAZENECA-2010SE48698

PATIENT
  Age: 70 Year
  Sex: Female

DRUGS (1)
  1. VIMOVO [Suspect]
     Indication: PAIN
     Dosage: 500 MG TWO TIMES A DAY
     Route: 048
     Dates: start: 20101006, end: 20101008

REACTIONS (2)
  - DYSPNOEA [None]
  - FEELING ABNORMAL [None]
